FAERS Safety Report 6704478-X (Version None)
Quarter: 2010Q2

REPORT INFORMATION
  Report Type: 
  Country: None (occurrence: None)
  Receive Date: 20100430
  Receipt Date: 20100422
  Transmission Date: 20101027
  Serious: Yes (Death)
  Sender: FDA-Public Use
  Company Number: GXKR2009FR01535

PATIENT
  Age: 15 Year
  Sex: Female

DRUGS (2)
  1. MINOCYCLINE HCL [Suspect]
     Indication: ACNE
     Dosage: UNK
  2. AMOXICILLIN + CLAVULANATE POTASSIUM (NGX) [Suspect]
     Dosage: UNK
     Route: 065

REACTIONS (23)
  - ACUTE RESPIRATORY DISTRESS SYNDROME [None]
  - DERMATITIS EXFOLIATIVE [None]
  - DISSEMINATED INTRAVASCULAR COAGULATION [None]
  - DRUG RASH WITH EOSINOPHILIA AND SYSTEMIC SYMPTOMS [None]
  - ENCEPHALITIS [None]
  - EOSINOPHILIA [None]
  - FACE OEDEMA [None]
  - HEPATOSPLENOMEGALY [None]
  - HYPERTENSION [None]
  - LYMPHADENOPATHY [None]
  - MULTI-ORGAN FAILURE [None]
  - PHARYNGITIS [None]
  - PNEUMONITIS [None]
  - PRURITUS [None]
  - PYREXIA [None]
  - RASH MACULO-PAPULAR [None]
  - RENAL FAILURE [None]
  - SEPSIS [None]
  - SHOCK [None]
  - STATUS EPILEPTICUS [None]
  - TACHYCARDIA [None]
  - TACHYPNOEA [None]
  - TRANSAMINASES INCREASED [None]
